FAERS Safety Report 17141876 (Version 1)
Quarter: 2019Q4

REPORT INFORMATION
  Report Type: Spontaneous
  Country: JP (occurrence: JP)
  Receive Date: 20191211
  Receipt Date: 20191211
  Transmission Date: 20200122
  Serious: No
  Sender: FDA-Public Use
  Company Number: JP-ELI_LILLY_AND_COMPANY-JP201909011764

PATIENT
  Age: 84 Year
  Sex: Male

DRUGS (7)
  1. AVOLVE [Concomitant]
     Active Substance: DUTASTERIDE
     Indication: BENIGN PROSTATIC HYPERPLASIA
     Dosage: UNK
     Route: 065
  2. IRBESARTAN. [Concomitant]
     Active Substance: IRBESARTAN
  3. NEOXY [Concomitant]
     Active Substance: OXYBUTYNIN CHLORIDE
     Route: 062
  4. HACHIMIJIOGAN [Concomitant]
     Active Substance: HERBALS
  5. FEBURIC [Concomitant]
     Active Substance: FEBUXOSTAT
  6. TRAZENTA [Concomitant]
     Active Substance: LINAGLIPTIN
  7. ZALUTIA [Suspect]
     Active Substance: TADALAFIL
     Indication: BENIGN PROSTATIC HYPERPLASIA
     Dosage: 5 MG, DAILY
     Route: 048
     Dates: start: 20190704, end: 20191016

REACTIONS (1)
  - Visual acuity reduced [Recovered/Resolved]

NARRATIVE: CASE EVENT DATE: 20190711
